FAERS Safety Report 6393162-0 (Version None)
Quarter: 2009Q4

REPORT INFORMATION
  Report Type: 
  Country: None (occurrence: None)
  Receive Date: 20091008
  Receipt Date: 20091001
  Transmission Date: 20100525
  Serious: Yes (Hospitalization)
  Sender: FDA-Public Use
  Company Number: AU-NOVOPROD-289586

PATIENT
  Age: 69 Year
  Sex: Male
  Weight: 101 kg

DRUGS (9)
  1. ACTRAPID [Suspect]
     Indication: INSULIN-REQUIRING TYPE 2 DIABETES MELLITUS
     Dosage: 60 U, TID
     Route: 058
  2. NOVORAPID [Suspect]
     Indication: INSULIN-REQUIRING TYPE 2 DIABETES MELLITUS
     Dosage: BEFORE MEALS
  3. LANTUS [Concomitant]
     Indication: INSULIN-REQUIRING TYPE 2 DIABETES MELLITUS
     Dosage: 50 U, BID
  4. ATACAND [Concomitant]
     Dosage: 8 MG, QD
  5. CARDIZEM [Concomitant]
     Dosage: 240 MG, BID
  6. FRUSEMIDE                          /00032601/ [Concomitant]
     Dosage: 40 MG, QD
  7. PROPRANOLOL [Concomitant]
     Dosage: 20 MG, TID
  8. PRAVACHOL [Concomitant]
     Dosage: 20 MG, QD
  9. LIPIDIL [Concomitant]
     Dosage: 145 MG, QD

REACTIONS (2)
  - BLOOD GLUCOSE INCREASED [None]
  - INSULIN RESISTANCE SYNDROME [None]
